FAERS Safety Report 8563465-X (Version None)
Quarter: 2012Q3

REPORT INFORMATION
  Report Type: 
  Country: None (occurrence: None)
  Receive Date: 20120802
  Receipt Date: 20120731
  Transmission Date: 20120928
  Serious: Yes (Death)
  Sender: FDA-Public Use
  Company Number: GB-ROCHE-1067227

PATIENT
  Sex: Male

DRUGS (1)
  1. MABTHERA [Suspect]
     Indication: PRODUCT USED FOR UNKNOWN INDICATION
     Dates: start: 20111110

REACTIONS (3)
  - DEATH [None]
  - PULMONARY FIBROSIS [None]
  - PNEUMONIA [None]
